FAERS Safety Report 5399087-1 (Version None)
Quarter: 2007Q3

REPORT INFORMATION
  Report Type: 
  Country: None (occurrence: None)
  Receive Date: 20070727
  Receipt Date: 20060815
  Transmission Date: 20080115
  Serious: No
  Sender: FDA-Public Use
  Company Number: A0616729A

PATIENT
  Age: 71 Year
  Sex: Female

DRUGS (10)
  1. LOTRONEX [Suspect]
     Indication: IRRITABLE BOWEL SYNDROME
     Dosage: .5MG TWICE PER DAY
     Route: 048
     Dates: start: 20060701
  2. PAXIL [Concomitant]
  3. LESCOL [Concomitant]
  4. ACTONEL [Concomitant]
  5. NAPROXEN [Concomitant]
  6. LYRICA [Concomitant]
  7. LORTAB [Concomitant]
  8. DIPHENHIST [Concomitant]
  9. ANTACID TAB [Concomitant]
  10. VITAMIN [Concomitant]

REACTIONS (5)
  - ABNORMAL FAECES [None]
  - BACK DISORDER [None]
  - DISCOMFORT [None]
  - FLATULENCE [None]
  - TREATMENT NONCOMPLIANCE [None]
